FAERS Safety Report 21165905 (Version 2)
Quarter: 2022Q3

REPORT INFORMATION
  Report Type: Spontaneous
  Country: JP (occurrence: JP)
  Receive Date: 20220803
  Receipt Date: 20220823
  Transmission Date: 20221026
  Serious: Yes (Hospitalization, Other)
  Sender: FDA-Public Use
  Company Number: JP-Accord-271639

PATIENT
  Age: 78 Year
  Sex: Male
  Weight: 71 kg

DRUGS (4)
  1. FUROSEMIDE [Suspect]
     Active Substance: FUROSEMIDE
     Indication: Oedema peripheral
     Dosage: 20 MG PER DAY
  2. DILTIAZEM [Interacting]
     Active Substance: DILTIAZEM
     Indication: Atrial fibrillation
     Dosage: 200 MG PER DAY
  3. NIFEDIPINE [Interacting]
     Active Substance: NIFEDIPINE
     Indication: Atrial fibrillation
     Dosage: 80 MG PER DAY
  4. NITROGLYCERIN [Concomitant]
     Active Substance: NITROGLYCERIN
     Indication: Prinzmetal angina

REACTIONS (3)
  - Oedema peripheral [Recovered/Resolved]
  - Drug interaction [Unknown]
  - Renal impairment [Recovering/Resolving]
